FAERS Safety Report 4470558-5 (Version None)
Quarter: 2004Q4

REPORT INFORMATION
  Report Type: 
  Country: None (occurrence: None)
  Receive Date: 20041011
  Receipt Date: 20041005
  Transmission Date: 20050328
  Serious: Yes (Hospitalization)
  Sender: FDA-Public Use
  Company Number: US-JNJFOC-20040901290

PATIENT
  Sex: Male
  Weight: 71.67 kg

DRUGS (2)
  1. LEVAQUIN [Suspect]
     Indication: PNEUMONIA
     Route: 049
     Dates: start: 20040813, end: 20040820
  2. REMICADE [Suspect]
     Indication: CROHN'S DISEASE
     Route: 042

REACTIONS (3)
  - CHILLS [None]
  - MUSCULOSKELETAL STIFFNESS [None]
  - PNEUMONIA [None]
